FAERS Safety Report 9085369 (Version 2)
Quarter: 2013Q1

REPORT INFORMATION
  Report Type: Spontaneous
  Country: DK (occurrence: FI)
  Receive Date: 20130131
  Receipt Date: 20130214
  Transmission Date: 20140127
  Serious: Yes (Hospitalization)
  Sender: FDA-Public Use
  Company Number: FI-FRI-1000042315

PATIENT
  Age: 14 Year
  Sex: Female

DRUGS (2)
  1. ESCITALOPRAM [Suspect]
     Indication: DEPRESSION
     Dosage: 10 MG
     Route: 048
     Dates: start: 201210
  2. ESCITALOPRAM [Suspect]
     Indication: SOCIAL PHOBIA

REACTIONS (2)
  - Epilepsy [Recovered/Resolved]
  - Off label use [Unknown]
